FAERS Safety Report 6900769-8 (Version None)
Quarter: 2010Q3

REPORT INFORMATION
  Report Type: 
  Country: None (occurrence: None)
  Receive Date: 20100803
  Receipt Date: 20100730
  Transmission Date: 20110219
  Serious: Yes (Other)
  Sender: FDA-Public Use
  Company Number: US-ROXANE LABORATORIES, INC.-2010-RO-00944RO

PATIENT
  Sex: Male

DRUGS (18)
  1. DIGOXIN [Suspect]
  2. FELDENE [Suspect]
  3. GABAPENTIN [Suspect]
  4. FOLIC ACID [Suspect]
  5. ATENOLOL [Suspect]
  6. ZYRTEC [Suspect]
     Route: 048
  7. TRAMADOL HYDROCHLORIDE [Suspect]
  8. NORVIR [Suspect]
  9. FERROUS SULFATE [Suspect]
  10. DIPHENHYDRAMINE [Suspect]
  11. LOPERAMIDE [Suspect]
  12. ATROVENT [Suspect]
  13. COZAAR [Suspect]
  14. LEXAPRO [Suspect]
  15. EPOGEN [Suspect]
  16. ABILIFY [Suspect]
  17. CARVEDILOL [Suspect]
  18. SEROQUEL [Suspect]

REACTIONS (2)
  - DRUG INTERACTION [None]
  - RASH [None]
